FAERS Safety Report 5893004-3 (Version None)
Quarter: 2008Q3

REPORT INFORMATION
  Report Type: 
  Country: None (occurrence: None)
  Receive Date: 20080923
  Receipt Date: 20070501
  Transmission Date: 20090109
  Serious: No
  Sender: FDA-Public Use
  Company Number: US-ASTRAZENECA-2007UW09633

PATIENT
  Age: 22664 Day
  Sex: Female
  Weight: 62.7 kg

DRUGS (5)
  1. SEROQUEL [Suspect]
     Indication: DEPRESSION
     Route: 048
     Dates: start: 20020506, end: 20040101
  2. SEROQUEL [Suspect]
     Indication: BIPOLAR DISORDER
     Route: 048
     Dates: start: 20020506, end: 20040101
  3. CLOZARIL [Concomitant]
  4. NAVANE [Concomitant]
  5. TRILAFON/TRIAVIL [Concomitant]

REACTIONS (2)
  - FALL [None]
  - TYPE 2 DIABETES MELLITUS [None]
